FAERS Safety Report 7229376-7 (Version None)
Quarter: 2011Q1

REPORT INFORMATION
  Report Type: 
  Country: None (occurrence: None)
  Receive Date: 20110117
  Receipt Date: 20110107
  Transmission Date: 20110831
  Serious: Yes (Hospitalization, Other)
  Sender: FDA-Public Use
  Company Number: A0903099A

PATIENT
  Age: 66 Year
  Sex: Male

DRUGS (12)
  1. CYCLOSPORINE [Concomitant]
     Dosage: 200MG TWICE PER DAY
     Route: 048
  2. METOPROLOL [Concomitant]
     Indication: ATRIAL FIBRILLATION
     Dosage: 200MG PER DAY
     Route: 048
  3. POTASSIUM CHLORIDE [Concomitant]
     Dosage: 20MEQ PER DAY
  4. SIMVASTATIN [Concomitant]
     Dosage: 20MG AT NIGHT
  5. FUROSEMIDE [Concomitant]
     Dosage: 2TAB PER DAY
     Route: 048
  6. MULTI-VITAMIN [Concomitant]
  7. DABIGATRAN [Concomitant]
     Dosage: 150MG TWICE PER DAY
  8. AMLODIPINE [Concomitant]
     Indication: HYPERTENSION
     Dosage: 10MG PER DAY
     Route: 048
  9. ASPIRIN [Concomitant]
     Indication: MYOCARDIAL INFARCTION
     Dosage: 81MG PER DAY
     Route: 048
  10. DIPHENHYDRAMINE [Concomitant]
     Dosage: 25MG AS REQUIRED
     Route: 048
  11. PROMACTA [Suspect]
     Indication: IDIOPATHIC THROMBOCYTOPENIC PURPURA
     Dosage: 75MG PER DAY
     Route: 048
     Dates: start: 20100701, end: 20101213
  12. ACETAMINOPHEN [Concomitant]
     Dosage: 1000MG AS REQUIRED
     Route: 048

REACTIONS (2)
  - ISCHAEMIC STROKE [None]
  - ATRIAL FIBRILLATION [None]
